FAERS Safety Report 20846845 (Version 1)
Quarter: 2022Q2

REPORT INFORMATION
  Report Type: Spontaneous
  Country: FR (occurrence: FR)
  Receive Date: 20220519
  Receipt Date: 20220519
  Transmission Date: 20220721
  Serious: Yes (Other)
  Sender: FDA-Public Use
  Company Number: FR-AFSSAPS-AN20221098

PATIENT
  Age: 65 Year
  Sex: Male
  Weight: 97 kg

DRUGS (4)
  1. CLOPIDOGREL [Interacting]
     Active Substance: CLOPIDOGREL BISULFATE
     Indication: Thrombosis
     Dosage: 75 MILLIGRAM (1 TOTAL)
     Route: 048
     Dates: start: 20220324, end: 20220324
  2. HEPARIN SODIUM [Interacting]
     Active Substance: HEPARIN SODIUM
     Indication: Thrombosis
     Dosage: UNK
     Route: 042
     Dates: start: 20220323, end: 20220325
  3. KARDEGIC [Interacting]
     Active Substance: ASPIRIN DL-LYSINE
     Indication: Cardiovascular event prophylaxis
     Dosage: 75 MILLIGRAM, ONCE A DAY
     Route: 048
  4. AMBROXOL [Interacting]
     Active Substance: AMBROXOL
     Indication: Thrombolysis
     Dosage: 600000 INTERNATIONAL UNIT, FOUR TIMES/DAY
     Route: 013
     Dates: start: 20220324, end: 20220325

REACTIONS (3)
  - Haemorrhage [Recovered/Resolved]
  - Product availability issue [Recovered/Resolved]
  - Drug interaction [Recovered/Resolved]

NARRATIVE: CASE EVENT DATE: 20220325
